FAERS Safety Report 6027442-5 (Version None)
Quarter: 2009Q1

REPORT INFORMATION
  Report Type: 
  Country: None (occurrence: None)
  Receive Date: 20090105
  Receipt Date: 20081223
  Transmission Date: 20090719
  Serious: Yes (Death)
  Sender: FDA-Public Use
  Company Number: GB-MERCK-0812USA05202

PATIENT
  Age: 48 Year
  Sex: Male

DRUGS (6)
  1. ZOCOR [Suspect]
     Route: 048
  2. ZESTRIL [Suspect]
     Route: 065
  3. LITHIUM [Suspect]
     Route: 065
  4. ALLOPURINOL [Concomitant]
     Route: 065
  5. ZETIA [Concomitant]
     Route: 048
  6. METFORMIN [Concomitant]
     Route: 065

REACTIONS (1)
  - DEATH [None]
